FAERS Safety Report 9177242 (Version 4)
Quarter: 2013Q2

REPORT INFORMATION
  Report Type: Spontaneous
  Country: US (occurrence: US)
  Receive Date: 20130321
  Receipt Date: 20130626
  Transmission Date: 20140414
  Serious: Yes (Death, Hospitalization, Other)
  Sender: FDA-Public Use
  Company Number: US-ASTELLAS-2013US003000

PATIENT
  Age: 63 Year
  Sex: Male

DRUGS (1)
  1. PROGRAF [Suspect]
     Indication: LIVER TRANSPLANT
     Dosage: 2 MG IN THE MORNING, 1 MG IN THE EVENING
     Route: 048
     Dates: start: 20070108, end: 20130226

REACTIONS (7)
  - Amputation [Unknown]
  - Atrial fibrillation [Unknown]
  - Renal failure [Unknown]
  - Pneumonia [Unknown]
  - Clostridium difficile infection [Unknown]
  - Sepsis [Fatal]
  - Cardiac failure congestive [Fatal]
